FAERS Safety Report 9174257 (Version 2)
Quarter: 2013Q2

REPORT INFORMATION
  Report Type: Spontaneous
  Country: US (occurrence: None)
  Receive Date: 20130313
  Receipt Date: 20130415
  Transmission Date: 20140414
  Serious: Yes (Other)
  Sender: FDA-Public Use
  Company Number: JPI-P-030312

PATIENT
  Age: 57 Year
  Sex: Female
  Weight: 58.97 kg

DRUGS (7)
  1. XYREM [Suspect]
     Indication: RAPID EYE MOVEMENTS SLEEP ABNORMAL
     Dosage: (3 GM,2 IN 1 D)
     Route: 048
     Dates: start: 20120228
  2. ESCITALOPRAM OXALATE [Concomitant]
  3. ANABOLIC STEROIDS [Concomitant]
  4. ZOLPIDEM TARTRATE [Concomitant]
  5. TRIAMTERENE [Concomitant]
  6. CLONAZEPAM [Concomitant]
  7. LISDEXAMFETAMINE DIMESYLATE [Concomitant]

REACTIONS (11)
  - Fluid retention [None]
  - Erythema [None]
  - Hypoaesthesia [None]
  - Paraesthesia [None]
  - Muscle spasms [None]
  - Muscle tightness [None]
  - Skin oedema [None]
  - Bone tuberculosis [None]
  - Complex regional pain syndrome [None]
  - Raynaud^s phenomenon [None]
  - Condition aggravated [None]
